FAERS Safety Report 7410416-7 (Version None)
Quarter: 2011Q2

REPORT INFORMATION
  Report Type: 
  Country: None (occurrence: None)
  Receive Date: 20110412
  Receipt Date: 20100423
  Transmission Date: 20111010
  Serious: Yes (Hospitalization)
  Sender: FDA-Public Use
  Company Number: DE-GENENTECH-316577

PATIENT
  Age: 68 Year
  Sex: Female

DRUGS (1)
  1. LUCENTIS [Suspect]
     Indication: MACULAR DEGENERATION
     Dosage: UNK
     Route: 031
     Dates: start: 20100422

REACTIONS (7)
  - HIP DEFORMITY [None]
  - WOUND ABSCESS [None]
  - EYE IRRITATION [None]
  - VISUAL IMPAIRMENT [None]
  - SUTURE RUPTURE [None]
  - EYE PAIN [None]
  - MUSCULOSKELETAL DISCOMFORT [None]
